FAERS Safety Report 5678276-2 (Version None)
Quarter: 2008Q1

REPORT INFORMATION
  Report Type: 
  Country: None (occurrence: None)
  Receive Date: 20080324
  Receipt Date: 20080324
  Transmission Date: 20080703
  Serious: Yes (Other)
  Sender: FDA-Public Use
  Company Number: None

PATIENT
  Age: 20 Year
  Sex: Female
  Weight: 54.4316 kg

DRUGS (2)
  1. WELLBUTRIN SR [Suspect]
     Indication: ANXIETY
     Dosage: 300 MG 1 DAILY PO
     Route: 048
     Dates: start: 20070815, end: 20070915
  2. WELLBUTRIN SR [Suspect]
     Indication: DEPRESSION
     Dosage: 300 MG 1 DAILY PO
     Route: 048
     Dates: start: 20070815, end: 20070915

REACTIONS (7)
  - HEADACHE [None]
  - MENORRHAGIA [None]
  - MENSTRUAL DISORDER [None]
  - MENSTRUATION IRREGULAR [None]
  - NAUSEA [None]
  - VAGINAL HAEMORRHAGE [None]
  - VISION BLURRED [None]
